FAERS Safety Report 20814971 (Version 1)
Quarter: 2022Q2

REPORT INFORMATION
  Report Type: Spontaneous
  Country: US (occurrence: US)
  Receive Date: 20220511
  Receipt Date: 20220511
  Transmission Date: 20220721
  Serious: Yes (Other)
  Sender: FDA-Public Use
  Company Number: US-AstraZeneca-2022A137161

PATIENT
  Age: 79 Year
  Sex: Male
  Weight: 68 kg

DRUGS (1)
  1. TUDORZA PRESSAIR [Suspect]
     Active Substance: ACLIDINIUM BROMIDE
     Indication: Chronic obstructive pulmonary disease
     Route: 055

REACTIONS (5)
  - Cataract [Recovering/Resolving]
  - Body height decreased [Not Recovered/Not Resolved]
  - Intentional device misuse [Unknown]
  - Device malfunction [Unknown]
  - Drug dose omission by device [Unknown]

NARRATIVE: CASE EVENT DATE: 20220331
